FAERS Safety Report 15539064 (Version 4)
Quarter: 2018Q4

REPORT INFORMATION
  Report Type: Spontaneous
  Country: US (occurrence: US)
  Receive Date: 20181022
  Receipt Date: 20181031
  Transmission Date: 20190205
  Serious: Yes (Death, Other)
  Sender: FDA-Public Use
  Company Number: US-PFIZER INC-2018430092

PATIENT
  Age: 56 Year
  Sex: Male

DRUGS (4)
  1. PHENOBARBITON [Concomitant]
     Active Substance: PHENOBARBITAL
     Indication: SEIZURE
     Dosage: UNK
  2. PHENYTOIN. [Concomitant]
     Active Substance: PHENYTOIN
     Indication: SEIZURE
     Dosage: UNK
  3. DILTIAZEM. [Concomitant]
     Active Substance: DILTIAZEM
     Indication: ATRIAL FLUTTER
     Dosage: UNK
     Route: 041
  4. AMIODARONE HCL [Suspect]
     Active Substance: AMIODARONE HYDROCHLORIDE
     Indication: ATRIAL FLUTTER
     Dosage: 28.8 MG, PER HOUR
     Route: 042

REACTIONS (5)
  - Acute hepatic failure [Fatal]
  - Cardiac arrest [Fatal]
  - Ischaemic hepatitis [Fatal]
  - Drug-induced liver injury [Fatal]
  - Multiple organ dysfunction syndrome [Fatal]
